FAERS Safety Report 7764594-0 (Version None)
Quarter: 2011Q3

REPORT INFORMATION
  Report Type: 
  Country: None (occurrence: None)
  Receive Date: 20110921
  Receipt Date: 20110915
  Transmission Date: 20111222
  Serious: Yes (Death, Other)
  Sender: FDA-Public Use
  Company Number: CO-ELI_LILLY_AND_COMPANY-CO201107003300

PATIENT
  Age: 66 Year
  Sex: Male

DRUGS (4)
  1. CISPLATIN [Concomitant]
     Dosage: UNK, UNKNOWN
     Route: 065
  2. VITAMIN B-12 [Concomitant]
  3. FOLIC ACID [Concomitant]
  4. ALIMTA [Suspect]
     Indication: LUNG ADENOCARCINOMA
     Dosage: 500 MG/M2, UNKNOWN
     Route: 065

REACTIONS (4)
  - LIVER DISORDER [None]
  - INFECTION [None]
  - JAUNDICE [None]
  - MULTI-ORGAN FAILURE [None]
